FAERS Safety Report 8373185-2 (Version None)
Quarter: 2012Q2

REPORT INFORMATION
  Report Type: 
  Country: None (occurrence: None)
  Receive Date: 20120521
  Receipt Date: 20120509
  Transmission Date: 20120825
  Serious: Yes (Hospitalization)
  Sender: FDA-Public Use
  Company Number: GR-PFIZER INC-2012035414

PATIENT
  Age: 80 Year
  Sex: Male
  Weight: 80 kg

DRUGS (9)
  1. SALOSPIR [Concomitant]
     Indication: CORONARY ARTERY DISEASE
     Dosage: 100 MG, 1X/DAY
     Route: 048
     Dates: start: 20080927, end: 20120123
  2. THYROHORMONE [Concomitant]
     Indication: THYROIDECTOMY
     Dosage: 0.1 MG, 1X/DAY
     Route: 048
     Dates: start: 19620101, end: 20120123
  3. GLUCOPHAGE [Concomitant]
     Indication: DIABETES MELLITUS
     Dosage: 850 MG, 1X/DAY
     Route: 048
     Dates: start: 20080927, end: 20120123
  4. AVASTIN [Suspect]
     Indication: RENAL CANCER
     Dosage: 800 MG, CYCLIC, EVERY 2 WEEKS
     Route: 042
     Dates: start: 20110629, end: 20120118
  5. NORVASC [Concomitant]
     Indication: CORONARY ARTERY DISEASE
     Dosage: 5 MG, 1X/DAY
     Route: 048
     Dates: start: 20080927, end: 20120123
  6. TORISEL [Suspect]
     Indication: RENAL CANCER
     Dosage: 25 MG, WEEKLY
     Route: 042
     Dates: start: 20110629, end: 20120118
  7. LIPITOR [Concomitant]
     Indication: CORONARY ARTERY DISEASE
     Dosage: 40 MG, 1X/DAY
     Route: 048
     Dates: start: 20080927, end: 20120123
  8. IRBESARTAN [Concomitant]
     Indication: CORONARY ARTERY DISEASE
     Dosage: 300 MG, 1X/DAY
     Route: 048
     Dates: start: 20080927, end: 20120123
  9. SOTALOL HYDROCHLORIDE [Concomitant]
     Indication: CORONARY ARTERY DISEASE
     Dosage: 40 MG, 3X/DAY
     Route: 048
     Dates: start: 20080927, end: 20120123

REACTIONS (1)
  - ILEUS [None]
